FAERS Safety Report 23830370 (Version 1)
Quarter: 2024Q2

REPORT INFORMATION
  Report Type: Spontaneous
  Country: CN (occurrence: None)
  Receive Date: 20240508
  Receipt Date: 20240508
  Transmission Date: 20240716
  Serious: Yes (Hospitalization)
  Sender: FDA-Public Use
  Company Number: CN-ROCHE-3558498

PATIENT
  Age: 37 Year
  Sex: Female
  Weight: 68.3 kg

DRUGS (6)
  1. PERJETA [Suspect]
     Active Substance: PERTUZUMAB
     Indication: Invasive ductal breast carcinoma
     Dosage: 840 MG FIRST, 420 MG MAINTENANCE
     Route: 041
     Dates: start: 20240416, end: 20240416
  2. HERCEPTIN [Suspect]
     Active Substance: TRASTUZUMAB
     Indication: Invasive ductal breast carcinoma
     Dosage: 8 MG/KG FOR THE FIRST TIME, MAINTAIN 6 MG/KG
     Route: 041
     Dates: start: 20240416, end: 20240416
  3. DOCETAXEL [Suspect]
     Active Substance: DOCETAXEL\DOCETAXEL ANHYDROUS
     Indication: Invasive ductal breast carcinoma
     Dosage: 75MG/M2
     Route: 041
     Dates: start: 20240416, end: 20240416
  4. CARBOPLATIN [Suspect]
     Active Substance: CARBOPLATIN
     Indication: Invasive ductal breast carcinoma
     Dosage: AUC 5
     Route: 041
     Dates: start: 20240416, end: 20240416
  5. SODIUM CHLORIDE [Concomitant]
     Active Substance: SODIUM CHLORIDE
     Indication: Invasive ductal breast carcinoma
     Route: 041
     Dates: start: 20240416, end: 20240416
  6. DEXTROSE [Concomitant]
     Active Substance: DEXTROSE\DEXTROSE MONOHYDRATE
     Indication: Invasive ductal breast carcinoma
     Route: 041
     Dates: start: 20240416, end: 20240416

REACTIONS (1)
  - Myelosuppression [Recovering/Resolving]

NARRATIVE: CASE EVENT DATE: 20240424
